FAERS Safety Report 13946431 (Version 1)
Quarter: 2017Q3

REPORT INFORMATION
  Report Type: Spontaneous
  Country: GB (occurrence: GB)
  Receive Date: 20170907
  Receipt Date: 20170907
  Transmission Date: 20171128
  Serious: Yes (Life-Threatening, Other)
  Sender: FDA-Public Use
  Company Number: GB-MYLANLABS-2017M1054499

PATIENT
  Age: 30 Year
  Sex: Female
  Weight: 63.5 kg

DRUGS (1)
  1. CITALOPRAM [Suspect]
     Active Substance: CITALOPRAM HYDROBROMIDE
     Indication: DEPRESSED MOOD
     Dosage: HIGH (CAN^T REMEMBER BUT IT WAS ABOVE OR AT MAX DOSE)
     Route: 048
     Dates: start: 20101201, end: 20110201

REACTIONS (4)
  - Agitation [Recovered/Resolved]
  - Depressed mood [Recovered/Resolved]
  - Suicidal behaviour [Recovered/Resolved]
  - Restlessness [Recovered/Resolved]

NARRATIVE: CASE EVENT DATE: 201012
